FAERS Safety Report 4918080-3 (Version None)
Quarter: 2006Q1

REPORT INFORMATION
  Report Type: 
  Country: None (occurrence: None)
  Receive Date: 20060221
  Receipt Date: 20050524
  Transmission Date: 20060701
  Serious: Yes (Death)
  Sender: FDA-Public Use
  Company Number: US-MERCK-0505USA02924

PATIENT
  Age: 34 Year
  Sex: Male
  Weight: 110 kg

DRUGS (5)
  1. VIOXX [Suspect]
     Indication: GROIN PAIN
     Route: 048
     Dates: start: 20020611, end: 20020619
  2. VIOXX [Suspect]
     Route: 048
     Dates: start: 20020619, end: 20030212
  3. VIOXX [Suspect]
     Indication: TENDONITIS
     Route: 048
     Dates: start: 20020611, end: 20020619
  4. VIOXX [Suspect]
     Route: 048
     Dates: start: 20020619, end: 20030212
  5. FLECAINIDE ACETATE [Concomitant]
     Indication: ATRIAL FIBRILLATION
     Route: 065
     Dates: start: 20020202

REACTIONS (6)
  - CARDIAC FAILURE ACUTE [None]
  - CARDIOMYOPATHY [None]
  - FALL [None]
  - LOSS OF CONSCIOUSNESS [None]
  - MYOCARDIAL INFARCTION [None]
  - PULMONARY CONGESTION [None]
